FAERS Safety Report 15468335 (Version 2)
Quarter: 2018Q4

REPORT INFORMATION
  Report Type: Spontaneous
  Country: US (occurrence: US)
  Receive Date: 20181005
  Receipt Date: 20181011
  Transmission Date: 20190204
  Serious: Yes (Other)
  Sender: FDA-Public Use
  Company Number: US-CIPLA LTD.-2018US21561

PATIENT

DRUGS (5)
  1. LAMOTRIGINE. [Suspect]
     Active Substance: LAMOTRIGINE
     Dosage: 1 DF, UNK, TWO WEEKS BACK AND THE OTHER DAY
     Route: 048
     Dates: start: 201809
  2. LAMOTRIGINE. [Suspect]
     Active Substance: LAMOTRIGINE
     Indication: ANXIETY
     Dosage: UNK, 150 MG TABLETS OF OTHER MANUFACTURER
     Route: 065
  3. LAMOTRIGINE. [Suspect]
     Active Substance: LAMOTRIGINE
     Dosage: UNK, TWO AND A HALF PILLS FOR 2 DAYS
     Route: 048
     Dates: end: 201809
  4. LAMOTRIGINE. [Suspect]
     Active Substance: LAMOTRIGINE
     Dosage: UNK, 150 MG TABLETS OF THE PREVIOUS MANUFACTURER
     Route: 065
  5. LAMOTRIGINE. [Suspect]
     Active Substance: LAMOTRIGINE
     Dosage: UNK, 150 MG, HALF A TABLET THREE TIMES A DAY
     Route: 048

REACTIONS (13)
  - Fear [Recovered/Resolved]
  - Product administration error [Unknown]
  - Disturbance in attention [Recovered/Resolved]
  - Anxiety [Recovered/Resolved]
  - Headache [Recovered/Resolved]
  - Unevaluable event [Recovered/Resolved]
  - Discomfort [Recovered/Resolved]
  - Off label use [Unknown]
  - Product substitution issue [Unknown]
  - Dizziness [Unknown]
  - Incorrect dose administered [Unknown]
  - Drug ineffective [Unknown]
  - Impaired driving ability [Recovered/Resolved]

NARRATIVE: CASE EVENT DATE: 201809
